FAERS Safety Report 8862486 (Version 1)
Quarter: 2012Q4

REPORT INFORMATION
  Report Type: 
  Country: US (occurrence: US)
  Receive Date: 20121026
  Receipt Date: 20121026
  Transmission Date: 20130627
  Serious: Yes (Other)
  Sender: FDA-Public Use
  Company Number: US-ENDO PHARMACEUTICALS INC.-HCDA20120096

PATIENT
  Sex: Female
  Weight: 65.83 kg

DRUGS (2)
  1. HYDROCODONE/ACETAMINOPHEN [Suspect]
     Indication: PAIN
     Dosage: 10/650 MG
     Route: 048
     Dates: start: 2005
  2. HYDROCODONE/ACETAMINOPHEN [Suspect]
     Dosage: 60/3900 MG
     Route: 048
     Dates: end: 201207

REACTIONS (6)
  - Cerebrovascular accident [Unknown]
  - Myocardial infarction [Unknown]
  - Alopecia [Unknown]
  - Tooth loss [Unknown]
  - Onychomadesis [Unknown]
  - Drug effect decreased [Recovered/Resolved]
